FAERS Safety Report 6326280-3 (Version None)
Quarter: 2009Q3

REPORT INFORMATION
  Report Type: 
  Country: None (occurrence: None)
  Receive Date: 20090821
  Receipt Date: 20090814
  Transmission Date: 20100115
  Serious: Yes (Hospitalization)
  Sender: FDA-Public Use
  Company Number: DAV-AE-FUR-09-002

PATIENT
  Age: 46 Year
  Sex: Female

DRUGS (11)
  1. FUROSEMIDE [Suspect]
     Indication: RENAL FAILURE ACUTE
     Dosage: 80 MG QD ORALLY
     Route: 048
  2. LISINOPRIL [Concomitant]
  3. HYDROCHLOROTHIAZIDE [Concomitant]
  4. ATORVASTATIN [Concomitant]
  5. OMEPRAZOLE [Concomitant]
  6. ALBUTEROL METERED-DOSE INHALER [Concomitant]
  7. METFORMIN HCL [Concomitant]
  8. OXYCODONE [Concomitant]
  9. ALPRAZOLAM [Concomitant]
  10. VENLAFAXINE HYDROCHLORIDE [Concomitant]
  11. GABAPENTIN [Concomitant]

REACTIONS (21)
  - ANAEMIA [None]
  - ANURIA [None]
  - BLOOD CREATININE INCREASED [None]
  - CARBON DIOXIDE DECREASED [None]
  - CHEST PAIN [None]
  - CONFUSIONAL STATE [None]
  - DEAFNESS [None]
  - DRUG LEVEL DECREASED [None]
  - DYSPNOEA [None]
  - HAEMODIALYSIS [None]
  - HAEMOGLOBIN DECREASED [None]
  - HALLUCINATION [None]
  - HEADACHE [None]
  - HYPERHIDROSIS [None]
  - HYPOACUSIS [None]
  - MYOCLONUS [None]
  - PLATELET COUNT INCREASED [None]
  - PNEUMONIA [None]
  - URINARY TRACT INFECTION [None]
  - VISION BLURRED [None]
  - WHITE BLOOD CELL COUNT INCREASED [None]
